FAERS Safety Report 4497359-6 (Version None)
Quarter: 2004Q4

REPORT INFORMATION
  Report Type: 
  Country: None (occurrence: None)
  Receive Date: 20041104
  Receipt Date: 20041025
  Transmission Date: 20050328
  Serious: Yes (Hospitalization)
  Sender: FDA-Public Use
  Company Number: 2004083146

PATIENT
  Age: 76 Year
  Sex: Male
  Weight: 73.9363 kg

DRUGS (4)
  1. BENADRYL [Suspect]
     Indication: MULTIPLE ALLERGIES
     Dosage: 1 KAPSEAL 3-4 TIMES DAILY, ORAL
     Route: 048
     Dates: start: 19990101
  2. HYDROCORTISONE [Suspect]
     Indication: MULTIPLE ALLERGIES
     Dosage: INJECTION
  3. METOPROLOL TARTRATE [Concomitant]
  4. ASPIRIN [Concomitant]

REACTIONS (2)
  - FATIGUE [None]
  - HEART VALVE REPLACEMENT [None]
